FAERS Safety Report 4902792-1 (Version None)
Quarter: 2006Q1

REPORT INFORMATION
  Report Type: 
  Country: None (occurrence: None)
  Receive Date: 20060207
  Receipt Date: 20060126
  Transmission Date: 20060701
  Serious: Yes (Hospitalization)
  Sender: FDA-Public Use
  Company Number: FR-GLAXOSMITHKLINE-B0407969A

PATIENT
  Age: 57 Year
  Sex: Female

DRUGS (6)
  1. FLIXOTIDE DISKUS [Suspect]
     Indication: ASTHMA
     Dosage: 1PUFF TWICE PER DAY
     Route: 055
     Dates: start: 20000101
  2. BRICANYL [Suspect]
     Indication: ASTHMA
     Dosage: 1PUFF TWICE PER DAY
     Route: 055
     Dates: start: 20000101
  3. ATROVENT [Suspect]
     Indication: ASTHMA
     Dosage: 1PUFF TWICE PER DAY
     Route: 055
     Dates: start: 20000101
  4. SINGULAIR [Suspect]
     Indication: ASTHMA
     Route: 048
     Dates: start: 20030101, end: 20050901
  5. EFFERALGAN [Suspect]
     Route: 048
  6. ATARAX [Suspect]
     Indication: ANXIETY
     Dosage: 50MG AT NIGHT
     Route: 048

REACTIONS (10)
  - ALLERGIC GRANULOMATOUS ANGIITIS [None]
  - ANAEMIA [None]
  - ARTHRALGIA [None]
  - ASTHMA [None]
  - EOSINOPHILIA [None]
  - GENERAL PHYSICAL HEALTH DETERIORATION [None]
  - INFLAMMATION [None]
  - NEURITIS [None]
  - NEUROPATHY PERIPHERAL [None]
  - PYREXIA [None]
